FAERS Safety Report 16491962 (Version 2)
Quarter: 2019Q3

REPORT INFORMATION
  Report Type: Spontaneous
  Country: US (occurrence: US)
  Receive Date: 20190628
  Receipt Date: 20190729
  Transmission Date: 20191004
  Serious: Yes (Hospitalization)
  Sender: FDA-Public Use
  Company Number: US-FRESENIUS MEDICAL CARE RENAL THERAPIES GROUP-FMC-1906-000805

PATIENT
  Sex: Male

DRUGS (2)
  1. DELFLEX WITH DEXTROSE 2.5% LOW MAGNESIUM LOW CALCIUM [Suspect]
     Active Substance: CALCIUM CHLORIDE\DEXTROSE\MAGNESIUM CHLORIDE\SODIUM CHLORIDE\SODIUM LACTATE
     Indication: END STAGE RENAL DISEASE
     Dosage: 5 FILL CYCLES, A FILL VOLUME OF 2,000ML, DWELL TIME OF 1 HOUR 46 MINUTES, LAST FILL OF 2,000ML AND N
     Route: 033
     Dates: start: 20130507
  2. DELFLEX WITH DEXTROSE 4.25% LOW MAGNESIUM LOW CALCIUM [Suspect]
     Active Substance: CALCIUM CHLORIDE\DEXTROSE\MAGNESIUM CHLORIDE\SODIUM CHLORIDE\SODIUM LACTATE
     Indication: END STAGE RENAL DISEASE
     Dosage: 5 FILL CYCLES, A FILL VOLUME OF 2,000ML, DWELL TIME OF 1 HOUR 46 MINUTES, LAST FILL OF 2,000ML AND N
     Route: 033
     Dates: start: 20130507

REACTIONS (2)
  - Peritonitis bacterial [Unknown]
  - Hernia [Unknown]
